FAERS Safety Report 13071029 (Version 2)
Quarter: 2017Q1

REPORT INFORMATION
  Report Type: Report from Study
  Country: None (occurrence: US)
  Receive Date: 20161229
  Receipt Date: 20170303
  Transmission Date: 20170428
  Serious: Yes (Hospitalization, Other)
  Sender: FDA-Public Use
  Company Number: US-ABBVIE-16K-163-1821046-00

PATIENT
  Age: 70 Year
  Sex: Female

DRUGS (14)
  1. HUMIRA [Suspect]
     Active Substance: ADALIMUMAB
     Route: 058
     Dates: start: 20170224
  2. HUMIRA [Suspect]
     Active Substance: ADALIMUMAB
     Indication: COLITIS ULCERATIVE
     Dosage: LOADING DOSE
     Route: 058
     Dates: start: 201510, end: 201510
  3. MURO EYE DROPS [Concomitant]
     Indication: LACRIMATION INCREASED
  4. FISH OIL [Concomitant]
     Active Substance: FISH OIL
     Indication: VITAMIN SUPPLEMENTATION
  5. MURO EYE DROPS [Concomitant]
     Indication: CATARACT
  6. IRON [Concomitant]
     Active Substance: IRON
     Indication: COLITIS ULCERATIVE
  7. MURO 128 [Concomitant]
     Active Substance: SODIUM CHLORIDE
     Indication: LACRIMATION INCREASED
  8. HUMIRA [Suspect]
     Active Substance: ADALIMUMAB
     Dosage: TWO WEEKS AFTER 160 MG DOSE, LOADING DOSE
     Route: 058
     Dates: start: 2015, end: 2015
  9. AZATHIOPRINE. [Concomitant]
     Active Substance: AZATHIOPRINE
     Indication: COLITIS ULCERATIVE
     Dates: end: 201611
  10. CALCIUM WITH VITAMIN D [Concomitant]
     Active Substance: CALCIUM\VITAMIN D
     Indication: VITAMIN SUPPLEMENTATION
  11. HUMIRA [Suspect]
     Active Substance: ADALIMUMAB
     Dosage: FOUR WEEKS AFTER 160 MG DOSE
     Route: 058
     Dates: start: 2015, end: 201702
  12. AZATHIOPRINE. [Concomitant]
     Active Substance: AZATHIOPRINE
     Dates: start: 201611
  13. CALCIUM WITH VITAMIN D [Concomitant]
     Active Substance: CALCIUM\VITAMIN D
     Indication: MINERAL SUPPLEMENTATION
  14. MURO 128 [Concomitant]
     Active Substance: SODIUM CHLORIDE
     Indication: CATARACT

REACTIONS (4)
  - Pruritus [Recovering/Resolving]
  - Anal incontinence [Recovered/Resolved]
  - Colitis ulcerative [Recovering/Resolving]
  - Rash macular [Recovered/Resolved]

NARRATIVE: CASE EVENT DATE: 201608
